FAERS Safety Report 7032103-X (Version None)
Quarter: 2010Q4

REPORT INFORMATION
  Report Type: 
  Country: None (occurrence: None)
  Receive Date: 20101007
  Receipt Date: 20100928
  Transmission Date: 20110411
  Serious: Yes (Hospitalization, Other)
  Sender: FDA-Public Use
  Company Number: JP-ASTRAZENECA-2010SE45636

PATIENT
  Age: 80 Year
  Sex: Female

DRUGS (6)
  1. OMEPRAZON [Suspect]
     Route: 048
     Dates: end: 20100915
  2. FUROSEMIDE [Suspect]
     Dosage: LASIX, 60 MG DAILY
     Route: 048
     Dates: end: 20100905
  3. FUROSEMIDE [Suspect]
     Route: 042
     Dates: start: 20100901
  4. METILDIGOXIN [Concomitant]
     Route: 048
  5. WARFARIN SODIUM [Concomitant]
     Route: 048
  6. SPIRONOLACTONE [Concomitant]
     Route: 048

REACTIONS (3)
  - ATRIAL FIBRILLATION [None]
  - CARDIAC FAILURE [None]
  - PANCYTOPENIA [None]
